FAERS Safety Report 14244487 (Version 2)
Quarter: 2017Q4

REPORT INFORMATION
  Report Type: Spontaneous
  Country: DE (occurrence: DE)
  Receive Date: 20171201
  Receipt Date: 20171221
  Transmission Date: 20180321
  Serious: Yes (Hospitalization, Other)
  Sender: FDA-Public Use
  Company Number: PHHY2017DE174420

PATIENT
  Age: 33 Year
  Sex: Female
  Weight: 70 kg

DRUGS (1)
  1. GILENYA [Suspect]
     Active Substance: FINGOLIMOD HYDROCHLORIDE
     Indication: RELAPSING-REMITTING MULTIPLE SCLEROSIS
     Dosage: 0.5 MG, QD
     Route: 048
     Dates: end: 20171111

REACTIONS (18)
  - Amnesia [Unknown]
  - Hypoaesthesia [Unknown]
  - Loss of consciousness [Unknown]
  - Status epilepticus [Recovered/Resolved]
  - Muscle rigidity [Unknown]
  - Secondary progressive multiple sclerosis [Not Recovered/Not Resolved]
  - Ataxia [Unknown]
  - Dyschromatopsia [Unknown]
  - Expanded disability status scale score increased [Unknown]
  - Lymphopenia [Recovered/Resolved]
  - Diplopia [Unknown]
  - Urinary retention [Unknown]
  - Gait disturbance [Unknown]
  - Status epilepticus [Recovered/Resolved]
  - Seizure [Unknown]
  - Dysarthria [Unknown]
  - Pleocytosis [Not Recovered/Not Resolved]
  - Epilepsy [Recovered/Resolved]

NARRATIVE: CASE EVENT DATE: 2015
